FAERS Safety Report 7139114-4 (Version None)
Quarter: 2010Q4

REPORT INFORMATION
  Report Type: 
  Country: None (occurrence: None)
  Receive Date: 20101206
  Receipt Date: 20101129
  Transmission Date: 20110411
  Serious: Yes (Life-Threatening)
  Sender: FDA-Public Use
  Company Number: B0687570A

PATIENT
  Sex: Male

DRUGS (2)
  1. AUGMENTIN [Suspect]
     Dosage: 1G PER DAY
     Route: 048
     Dates: start: 20100913, end: 20100913
  2. TACHIDOL [Concomitant]
     Route: 048
     Dates: start: 20100912, end: 20100913

REACTIONS (9)
  - DIARRHOEA [None]
  - DYSPNOEA [None]
  - ERYTHEMA [None]
  - HYPERSENSITIVITY [None]
  - LIP OEDEMA [None]
  - PRURITUS [None]
  - TREMOR [None]
  - URTICARIA [None]
  - VOMITING [None]
